FAERS Safety Report 11336175 (Version 3)
Quarter: 2015Q4

REPORT INFORMATION
  Report Type: Spontaneous
  Country: US (occurrence: US)
  Receive Date: 20150804
  Receipt Date: 20151123
  Transmission Date: 20160304
  Serious: Yes (Other)
  Sender: FDA-Public Use
  Company Number: US-BRACCO-012444

PATIENT
  Age: 55 Year
  Sex: Female
  Weight: 110 kg

DRUGS (9)
  1. LISINOPRIL. [Concomitant]
     Active Substance: LISINOPRIL
  2. LIDOCAINE. [Concomitant]
     Active Substance: LIDOCAINE
     Route: 037
     Dates: start: 20150619, end: 20150619
  3. ANCEF [Concomitant]
     Active Substance: CEFAZOLIN SODIUM
     Dosage: PIGGYBACK
     Route: 042
     Dates: start: 20150619, end: 20150619
  4. HYDROCHLOROTHIAZIDE. [Concomitant]
     Active Substance: HYDROCHLOROTHIAZIDE
  5. ASPIRIN. [Concomitant]
     Active Substance: ASPIRIN
  6. BETADINE [Concomitant]
     Active Substance: POVIDONE-IODINE
     Route: 061
     Dates: start: 20150619, end: 20150619
  7. GABAPENTIN. [Concomitant]
     Active Substance: GABAPENTIN
  8. ISOVUE 200 [Suspect]
     Active Substance: IOPAMIDOL
     Indication: DISCOGRAM
     Route: 037
     Dates: start: 20150619, end: 20150619
  9. NAPROXEN. [Concomitant]
     Active Substance: NAPROXEN

REACTIONS (4)
  - Intervertebral discitis [Unknown]
  - Streptococcal infection [Unknown]
  - Osteomyelitis [Unknown]
  - Back pain [Recovering/Resolving]

NARRATIVE: CASE EVENT DATE: 20150625
